FAERS Safety Report 6180230-1 (Version None)
Quarter: 2009Q2

REPORT INFORMATION
  Report Type: 
  Country: None (occurrence: None)
  Receive Date: 20090504
  Receipt Date: 20090427
  Transmission Date: 20091009
  Serious: Yes (Death)
  Sender: FDA-Public Use
  Company Number: 2009US000954

PATIENT
  Sex: Female

DRUGS (5)
  1. PROGRAF [Suspect]
     Indication: LIVER TRANSPLANT
     Dosage: 2 MG, BID
     Dates: start: 19981028, end: 20081211
  2. PREDNISONE TAB [Concomitant]
  3. BACTRIM [Concomitant]
  4. CALCIUM (CALCIUM) [Concomitant]
  5. PRILOSEC (OMEPRAZOLE MAGNESIUM) [Concomitant]

REACTIONS (1)
  - RENAL CANCER [None]
